FAERS Safety Report 25308275 (Version 4)
Quarter: 2025Q4

REPORT INFORMATION
  Report Type: Spontaneous
  Country: US (occurrence: US)
  Receive Date: 20250513
  Receipt Date: 20251120
  Transmission Date: 20260118
  Serious: Yes (Other)
  Sender: SANOFI AVENTIS
  Company Number: US-SA-2025SA128841

PATIENT
  Age: 65 Year
  Sex: Female

DRUGS (3)
  1. DUPIXENT [Suspect]
     Active Substance: DUPILUMAB
     Indication: Asthma
     Dosage: 200 MG, 1X
     Route: 058
     Dates: start: 202503, end: 202503
  2. DUPIXENT [Suspect]
     Active Substance: DUPILUMAB
     Indication: Nasal polyps
     Dosage: 200 MG, QOW
     Route: 058
     Dates: start: 2025
  3. DUPIXENT [Suspect]
     Active Substance: DUPILUMAB
     Indication: Chronic obstructive pulmonary disease

REACTIONS (14)
  - Myelopathy [Unknown]
  - Spinal cord compression [Unknown]
  - Back pain [Recovering/Resolving]
  - Flushing [Recovered/Resolved]
  - Fatigue [Unknown]
  - Feeling hot [Recovering/Resolving]
  - Sluggishness [Unknown]
  - Brain fog [Unknown]
  - Skin odour abnormal [Unknown]
  - Condition aggravated [Unknown]
  - Headache [Unknown]
  - Ocular hyperaemia [Recovered/Resolved]
  - Eye pruritus [Recovering/Resolving]
  - Incorrect dose administered [Unknown]

NARRATIVE: CASE EVENT DATE: 20250101
